FAERS Safety Report 25897697 (Version 1)
Quarter: 2025Q4

REPORT INFORMATION
  Report Type: Report from Study
  Country: CO (occurrence: CO)
  Receive Date: 20251008
  Receipt Date: 20251008
  Transmission Date: 20260117
  Serious: Yes (Hospitalization, Other)
  Sender: ELI LILLY AND COMPANY
  Company Number: CO-ELI_LILLY_AND_COMPANY-CO202505020012

PATIENT
  Age: 77 Year
  Sex: Female

DRUGS (7)
  1. VERZENIO [Suspect]
     Active Substance: ABEMACICLIB
     Indication: Breast cancer
     Dosage: 150 MG, BID
     Route: 048
     Dates: start: 20250415, end: 20250514
  2. VERZENIO [Suspect]
     Active Substance: ABEMACICLIB
     Dosage: 150 MG, DAILY
     Route: 048
     Dates: end: 202508
  3. ANASTROZOLE [Concomitant]
     Active Substance: ANASTROZOLE
     Indication: Product used for unknown indication
  4. EMPAGLIFLOZIN\METFORMIN HYDROCHLORIDE [Concomitant]
     Active Substance: EMPAGLIFLOZIN\METFORMIN HYDROCHLORIDE
     Indication: Product used for unknown indication
     Dosage: UNK, DAILY
  5. MEMANTINE [Concomitant]
     Active Substance: MEMANTINE
     Indication: Product used for unknown indication
     Dosage: UNK, DAILY
  6. LORAZEPAM [Concomitant]
     Active Substance: LORAZEPAM
     Indication: Product used for unknown indication
     Dosage: 1 MG, DAILY
  7. RISPERIDONE [Concomitant]
     Active Substance: RISPERIDONE
     Indication: Product used for unknown indication
     Dosage: 1 MG, DAILY

REACTIONS (15)
  - White blood cell count decreased [Recovered/Resolved]
  - Tremor [Recovered/Resolved]
  - Anal incontinence [Recovering/Resolving]
  - Pyrexia [Recovered/Resolved]
  - Dementia Alzheimer^s type [Recovering/Resolving]
  - Loss of consciousness [Recovered/Resolved]
  - Off label use [Unknown]
  - Peripheral swelling [Recovering/Resolving]
  - Mobility decreased [Recovering/Resolving]
  - Chills [Recovered/Resolved]
  - Depression [Recovering/Resolving]
  - General physical health deterioration [Recovering/Resolving]
  - Constipation [Recovering/Resolving]
  - Faeces discoloured [Recovering/Resolving]
  - Dizziness [Recovered/Resolved]

NARRATIVE: CASE EVENT DATE: 20250501
